FAERS Safety Report 21105652 (Version 3)
Quarter: 2024Q1

REPORT INFORMATION
  Report Type: Spontaneous
  Country: US (occurrence: US)
  Receive Date: 20220720
  Receipt Date: 20240207
  Transmission Date: 20240410
  Serious: Yes (Other)
  Sender: FDA-Public Use
  Company Number: US-PFIZER INC-2017334313

PATIENT
  Age: 13 Year
  Sex: Male

DRUGS (4)
  1. BENEFIX [Suspect]
     Active Substance: COAGULATION FACTOR IX RECOMBINANT HUMAN\ISOPROPYL ALCOHOL
     Indication: Haemorrhage
     Dosage: 1000 IU, AS NEEDED (INJECT 1 VIAL (1000 UNITS +/- 10%) FOR MINOR BLEEDS)
     Route: 041
     Dates: start: 20191029
  2. BENEFIX [Suspect]
     Active Substance: COAGULATION FACTOR IX RECOMBINANT HUMAN\ISOPROPYL ALCOHOL
     Dosage: 2000 IU, AS NEEDED (VIALS (2000 UNITS +/- 10%) DAILY AS NEEDED FOR MAJOR BLEEDS)
     Route: 041
  3. BENEFIX [Suspect]
     Active Substance: COAGULATION FACTOR IX RECOMBINANT HUMAN\ISOPROPYL ALCOHOL
     Dosage: INJECT 2200 UNITS(+/-10% ) IV FOR MINOR BLEEDS DAILY PRN, 4200 UNITS(+/-10% ) IV DAILY PRN (ASS NEED
     Route: 042
  4. BENEFIX [Suspect]
     Active Substance: COAGULATION FACTOR IX RECOMBINANT HUMAN\ISOPROPYL ALCOHOL
     Dosage: INJECT 1 VIAL (1000UNITS+/-10% ) FOR MINOR BLEEDS DAILY PRN (AS NEEDED) AND 2 VIALS DAILY PRN (AS NE
     Route: 042

REACTIONS (2)
  - Haemorrhage [Unknown]
  - Product prescribing error [Unknown]
